FAERS Safety Report 4800228-2 (Version None)
Quarter: 2005Q4

REPORT INFORMATION
  Report Type: 
  Country: None (occurrence: None)
  Receive Date: 20051017
  Receipt Date: 20050215
  Transmission Date: 20060501
  Serious: No
  Sender: FDA-Public Use
  Company Number: US-GLAXOSMITHKLINE-A0545685A

PATIENT
  Age: 35 Year
  Sex: Female

DRUGS (1)
  1. CEFTIN [Suspect]
     Route: 048
     Dates: start: 20041230

REACTIONS (1)
  - DRUG EXPOSURE DURING PREGNANCY [None]
